FAERS Safety Report 7808423-5 (Version None)
Quarter: 2011Q4

REPORT INFORMATION
  Report Type: 
  Country: None (occurrence: None)
  Receive Date: 20111011
  Receipt Date: 20111011
  Transmission Date: 20120403
  Serious: Yes (Other)
  Sender: FDA-Public Use
  Company Number: None

PATIENT

DRUGS (1)
  1. ALEFACEPT [Suspect]
     Indication: IMMUNOSUPPRESSANT DRUG THERAPY
     Dosage: 15 MG WEEKLY SQ
     Route: 058
     Dates: start: 20100722, end: 20110927

REACTIONS (2)
  - KIDNEY TRANSPLANT REJECTION [None]
  - ANTIBODY TEST POSITIVE [None]
